FAERS Safety Report 5486786-6 (Version None)
Quarter: 2007Q4

REPORT INFORMATION
  Report Type: 
  Country: None (occurrence: None)
  Receive Date: 20071016
  Receipt Date: 20071012
  Transmission Date: 20080405
  Serious: Yes (Other)
  Sender: FDA-Public Use
  Company Number: B0491174A

PATIENT
  Age: 62 Year
  Sex: Male

DRUGS (3)
  1. BECLOMETHASON DIPROPIONATE [Suspect]
     Dosage: 4SPR PER DAY
     Route: 045
     Dates: start: 20070401, end: 20070401
  2. AMOXICILLIN [Concomitant]
     Route: 065
  3. CANDESARTAN CILEXETIL [Concomitant]
     Indication: HYPERTENSION
     Route: 065

REACTIONS (1)
  - ANOSMIA [None]
